FAERS Safety Report 21858753 (Version 1)
Quarter: 2023Q1

REPORT INFORMATION
  Report Type: Spontaneous
  Country: US (occurrence: None)
  Receive Date: 20230112
  Receipt Date: 20230112
  Transmission Date: 20230418
  Serious: Yes (Hospitalization)
  Sender: FDA-Public Use
  Company Number: None

PATIENT
  Sex: Female

DRUGS (1)
  1. DIMETHYL FUMARATE [Suspect]
     Active Substance: DIMETHYL FUMARATE
     Dosage: 240 BID ORAL
     Route: 048

REACTIONS (4)
  - COVID-19 [None]
  - Dyspnoea [None]
  - Foetal heart rate increased [None]
  - Product dose omission issue [None]
